FAERS Safety Report 7039059-4 (Version None)
Quarter: 2010Q4

REPORT INFORMATION
  Report Type: 
  Country: None (occurrence: None)
  Receive Date: 20101012
  Receipt Date: 20101006
  Transmission Date: 20110411
  Serious: Yes (Hospitalization, Other)
  Sender: FDA-Public Use
  Company Number: JP-SANOFI-AVENTIS-200813856JP

PATIENT
  Age: 66 Year
  Sex: Female
  Weight: 59 kg

DRUGS (4)
  1. DOCETAXEL [Suspect]
     Indication: STEWART-TREVES SYNDROME
     Route: 013
     Dates: start: 20081119, end: 20081126
  2. DOCETAXEL [Suspect]
     Route: 013
     Dates: start: 20081203, end: 20081210
  3. THYRADIN S [Concomitant]
     Route: 048
  4. DECADRON [Concomitant]
     Indication: PREMEDICATION
     Dates: start: 20081119, end: 20081210

REACTIONS (1)
  - SKIN NECROSIS [None]
